FAERS Safety Report 4761437-4 (Version None)
Quarter: 2005Q3

REPORT INFORMATION
  Report Type: 
  Country: None (occurrence: None)
  Receive Date: 20050901
  Receipt Date: 20050901
  Transmission Date: 20060218
  Serious: Yes (Hospitalization)
  Sender: FDA-Public Use
  Company Number: None

PATIENT
  Sex: Male

DRUGS (1)
  1. VELCADE [Suspect]
     Indication: MANTLE CELL LYMPHOMA
     Dosage: 1.3 MG/M2   D1+4 OF 21D CYCLE    IV BOLUS
     Route: 040

REACTIONS (2)
  - BODY TEMPERATURE INCREASED [None]
  - PNEUMONIA [None]
